FAERS Safety Report 10185631 (Version 1)
Quarter: 2014Q2

REPORT INFORMATION
  Report Type: Spontaneous
  Country: US (occurrence: US)
  Receive Date: 20140521
  Receipt Date: 20140521
  Transmission Date: 20141212
  Serious: No
  Sender: FDA-Public Use
  Company Number: US-PFIZER INC-2014133972

PATIENT
  Age: 83 Year
  Sex: Male

DRUGS (4)
  1. SUTENT [Suspect]
     Indication: RENAL CELL CARCINOMA
     Dosage: STRENGTH OF DOSAGE FORM: 12.5MG
     Dates: start: 20130411
  2. GLUCOSAMINE CHONDROITIN [Concomitant]
  3. LEVOTHYROXINE SODIUM [Concomitant]
  4. POTASSIUM CHLORIDE ER [Concomitant]

REACTIONS (1)
  - Immune system disorder [Unknown]
